FAERS Safety Report 23455419 (Version 1)
Quarter: 2024Q1

REPORT INFORMATION
  Report Type: Spontaneous
  Country: US (occurrence: US)
  Receive Date: 20240130
  Receipt Date: 20240130
  Transmission Date: 20240409
  Serious: No
  Sender: FDA-Public Use
  Company Number: US-STRIDES ARCOLAB LIMITED-2022SP016966

PATIENT
  Age: 78 Year
  Sex: Female

DRUGS (6)
  1. METHOTREXATE [Suspect]
     Active Substance: METHOTREXATE
     Indication: Myositis
     Dosage: UNK
     Route: 065
  2. METHOTREXATE [Suspect]
     Active Substance: METHOTREXATE
     Indication: Antiacetylcholine receptor antibody positive
  3. METHYLPREDNISOLONE [Concomitant]
     Active Substance: METHYLPREDNISOLONE
     Indication: Myositis
     Dosage: 1000 MILLIGRAM, UNKNOWN
     Route: 042
  4. METHYLPREDNISOLONE [Concomitant]
     Active Substance: METHYLPREDNISOLONE
     Indication: Antiacetylcholine receptor antibody positive
  5. PREDNISONE [Concomitant]
     Active Substance: PREDNISONE
     Indication: Myositis
     Dosage: 1 MILLIGRAM/KILOGRAM (PER DAY)
     Route: 065
  6. PREDNISONE [Concomitant]
     Active Substance: PREDNISONE
     Indication: Antiacetylcholine receptor antibody positive
     Dosage: UNK (GRADUALLY TAPERED)
     Route: 065

REACTIONS (1)
  - Off label use [Unknown]
